FAERS Safety Report 7023474-9 (Version None)
Quarter: 2010Q3

REPORT INFORMATION
  Report Type: 
  Country: None (occurrence: None)
  Receive Date: 20100929
  Receipt Date: 20100920
  Transmission Date: 20110219
  Serious: Yes (Hospitalization)
  Sender: FDA-Public Use
  Company Number: 2010US002596

PATIENT
  Age: 65 Year
  Sex: Male

DRUGS (6)
  1. ALEFACEPT (ALEFACEPT) INJECTIONI [Suspect]
     Indication: RENAL TRANSPLANT
     Dosage: 7.5 MG TOTAL DOSE IV NOS; 30 MG TOTAL DOSE SUBCUTANEOUS; 30 MG EVERY 2 WEEKS SUBCUTANEOUS; 15 MG MON
     Route: 042
     Dates: start: 20090808, end: 20090808
  2. ALEFACEPT (ALEFACEPT) INJECTIONI [Suspect]
     Indication: RENAL TRANSPLANT
     Dosage: 7.5 MG TOTAL DOSE IV NOS; 30 MG TOTAL DOSE SUBCUTANEOUS; 30 MG EVERY 2 WEEKS SUBCUTANEOUS; 15 MG MON
     Route: 042
     Dates: start: 20090811, end: 20090811
  3. ALEFACEPT (ALEFACEPT) INJECTIONI [Suspect]
     Indication: RENAL TRANSPLANT
     Dosage: 7.5 MG TOTAL DOSE IV NOS; 30 MG TOTAL DOSE SUBCUTANEOUS; 30 MG EVERY 2 WEEKS SUBCUTANEOUS; 15 MG MON
     Route: 042
     Dates: start: 20090814, end: 20090814
  4. ALEFACEPT (ALEFACEPT) INJECTIONI [Suspect]
     Indication: RENAL TRANSPLANT
     Dosage: 7.5 MG TOTAL DOSE IV NOS; 30 MG TOTAL DOSE SUBCUTANEOUS; 30 MG EVERY 2 WEEKS SUBCUTANEOUS; 15 MG MON
     Route: 042
     Dates: start: 20090831, end: 20091102
  5. ALEFACEPT (ALEFACEPT) INJECTIONI [Suspect]
     Indication: RENAL TRANSPLANT
     Dosage: 7.5 MG TOTAL DOSE IV NOS; 30 MG TOTAL DOSE SUBCUTANEOUS; 30 MG EVERY 2 WEEKS SUBCUTANEOUS; 15 MG MON
     Route: 042
     Dates: start: 20091130, end: 20100121
  6. PROGRAF [Suspect]
     Indication: RENAL TRANSPLANT
     Dosage: UNK ORAL
     Route: 048
     Dates: start: 20090804

REACTIONS (3)
  - MENTAL STATUS CHANGES [None]
  - RENAL FAILURE ACUTE [None]
  - VENTRICULAR TACHYCARDIA [None]
